FAERS Safety Report 10748845 (Version 1)
Quarter: 2015Q1

REPORT INFORMATION
  Report Type: Spontaneous
  Country: US (occurrence: None)
  Receive Date: 20150128
  Receipt Date: 20150128
  Transmission Date: 20150721
  Serious: Yes (Hospitalization)
  Sender: FDA-Public Use
  Company Number: None

PATIENT
  Age: 81 Year
  Sex: Male

DRUGS (16)
  1. ZYTIGA [Suspect]
     Active Substance: ABIRATERONE ACETATE
     Indication: PROSTATE CANCER
     Dosage: 4 TABLETS
     Route: 048
     Dates: start: 20141107, end: 20150110
  2. SUPRAX [Concomitant]
     Active Substance: CEFIXIME
  3. FUROSEMIDE. [Concomitant]
     Active Substance: FUROSEMIDE
  4. LEVETIRACETAM. [Concomitant]
     Active Substance: LEVETIRACETAM
  5. NOVOLIN [Concomitant]
     Active Substance: INSULIN HUMAN
  6. JANUVIA [Concomitant]
     Active Substance: SITAGLIPTIN PHOSPHATE
  7. CLINDAMYCIN [Concomitant]
     Active Substance: CLINDAMYCIN\CLINDAMYCIN PHOSPHATE
  8. CEPHALEXIN. [Concomitant]
     Active Substance: CEPHALEXIN
  9. BICALUTAMIDE. [Concomitant]
     Active Substance: BICALUTAMIDE
  10. CLOPIDOGREL [Concomitant]
     Active Substance: CLOPIDOGREL BISULFATE
  11. ALPRAZOLAM. [Concomitant]
     Active Substance: ALPRAZOLAM
  12. DEXILANT [Concomitant]
     Active Substance: DEXLANSOPRAZOLE
  13. METFORMIN [Concomitant]
     Active Substance: METFORMIN HYDROCHLORIDE
  14. POTASSIUM [Concomitant]
     Active Substance: POTASSIUM
  15. ATORVASTATIN [Concomitant]
     Active Substance: ATORVASTATIN
  16. SILVER SULFADIAZINE. [Concomitant]
     Active Substance: SILVER SULFADIAZINE

REACTIONS (6)
  - Furuncle [None]
  - Erythema [None]
  - Oedema [None]
  - Laceration [None]
  - Pain [None]
  - Swelling [None]

NARRATIVE: CASE EVENT DATE: 20150101
